FAERS Safety Report 4828132-4 (Version None)
Quarter: 2005Q4

REPORT INFORMATION
  Report Type: 
  Country: None (occurrence: None)
  Receive Date: 20051110
  Receipt Date: 20051101
  Transmission Date: 20060501
  Serious: Yes (Other)
  Sender: FDA-Public Use
  Company Number: HQWYE607110MAY05

PATIENT
  Age: 59 Year
  Sex: Male

DRUGS (20)
  1. RAPAMUNE [Suspect]
     Indication: IMMUNOSUPPRESSANT DRUG THERAPY
     Dosage: 6 MG 1X PER 1 DAY; ORAL; (SEE IMAGE)
     Route: 048
     Dates: start: 20050331, end: 20050331
  2. RAPAMUNE [Suspect]
     Indication: PROPHYLAXIS AGAINST TRANSPLANT REJECTION
     Dosage: 6 MG 1X PER 1 DAY; ORAL; (SEE IMAGE)
     Route: 048
     Dates: start: 20050331, end: 20050331
  3. RAPAMUNE [Suspect]
     Indication: IMMUNOSUPPRESSANT DRUG THERAPY
     Dosage: 6 MG 1X PER 1 DAY; ORAL; (SEE IMAGE)
     Route: 048
     Dates: start: 20050401, end: 20050408
  4. RAPAMUNE [Suspect]
     Indication: PROPHYLAXIS AGAINST TRANSPLANT REJECTION
     Dosage: 6 MG 1X PER 1 DAY; ORAL; (SEE IMAGE)
     Route: 048
     Dates: start: 20050401, end: 20050408
  5. RAPAMUNE [Suspect]
     Indication: IMMUNOSUPPRESSANT DRUG THERAPY
     Dosage: 6 MG 1X PER 1 DAY; ORAL; (SEE IMAGE)
     Route: 048
     Dates: start: 20050409, end: 20050419
  6. RAPAMUNE [Suspect]
     Indication: PROPHYLAXIS AGAINST TRANSPLANT REJECTION
     Dosage: 6 MG 1X PER 1 DAY; ORAL; (SEE IMAGE)
     Route: 048
     Dates: start: 20050409, end: 20050419
  7. RAPAMUNE [Suspect]
     Indication: IMMUNOSUPPRESSANT DRUG THERAPY
     Dosage: 6 MG 1X PER 1 DAY; ORAL; (SEE IMAGE)
     Route: 048
     Dates: start: 20050420, end: 20050428
  8. RAPAMUNE [Suspect]
     Indication: PROPHYLAXIS AGAINST TRANSPLANT REJECTION
     Dosage: 6 MG 1X PER 1 DAY; ORAL; (SEE IMAGE)
     Route: 048
     Dates: start: 20050420, end: 20050428
  9. RAPAMUNE [Suspect]
     Indication: IMMUNOSUPPRESSANT DRUG THERAPY
     Dosage: 6 MG 1X PER 1 DAY; ORAL; (SEE IMAGE)
     Route: 048
     Dates: start: 20050429
  10. RAPAMUNE [Suspect]
     Indication: PROPHYLAXIS AGAINST TRANSPLANT REJECTION
     Dosage: 6 MG 1X PER 1 DAY; ORAL; (SEE IMAGE)
     Route: 048
     Dates: start: 20050429
  11. SODIUM BICARBONATE [Concomitant]
  12. CALCIUM CARBONATE [Concomitant]
  13. CYCLOSPORINE [Concomitant]
  14. CYCLOSPORINE [Concomitant]
  15. PREDNISONE [Concomitant]
  16. AMLODIPINE [Concomitant]
  17. CEFEPIME [Concomitant]
  18. OMEPRAZOLE [Concomitant]
  19. DIPYRONE TAB [Concomitant]
  20. METHYLPREDNISOLONE [Concomitant]

REACTIONS (3)
  - GASTROINTESTINAL DISORDER [None]
  - POSTOPERATIVE WOUND COMPLICATION [None]
  - WOUND EVISCERATION [None]
